FAERS Safety Report 7283530-7 (Version None)
Quarter: 2011Q1

REPORT INFORMATION
  Report Type: 
  Country: None (occurrence: None)
  Receive Date: 20110125
  Receipt Date: 20110110
  Transmission Date: 20110831
  Serious: Yes (Death)
  Sender: FDA-Public Use
  Company Number: 025510

PATIENT
  Age: 50 Year
  Sex: Female

DRUGS (3)
  1. ALPRAZOLAM [Suspect]
  2. VENLAFAXINE [Suspect]
  3. METOPROLOL [Suspect]

REACTIONS (1)
  - COMPLETED SUICIDE [None]
